FAERS Safety Report 25265260 (Version 2)
Quarter: 2025Q2

REPORT INFORMATION
  Report Type: Spontaneous
  Country: ES (occurrence: None)
  Receive Date: 20250502
  Receipt Date: 20250512
  Transmission Date: 20250716
  Serious: Yes (Death)
  Sender: INCYTE
  Company Number: ES-INCYTE CORPORATION-2025IN004705

PATIENT

DRUGS (3)
  1. TAFASITAMAB [Suspect]
     Active Substance: TAFASITAMAB
     Indication: Diffuse large B-cell lymphoma
     Route: 065
  2. LENALIDOMIDE [Concomitant]
     Active Substance: LENALIDOMIDE
     Indication: Product used for unknown indication
     Route: 065
  3. LENALIDOMIDE [Concomitant]
     Active Substance: LENALIDOMIDE
     Indication: Diffuse large B-cell lymphoma

REACTIONS (2)
  - Disease progression [Fatal]
  - Nervous system disorder [Fatal]
